FAERS Safety Report 17625769 (Version 1)
Quarter: 2020Q2

REPORT INFORMATION
  Report Type: Spontaneous
  Country: US (occurrence: US)
  Receive Date: 20200404
  Receipt Date: 20200404
  Transmission Date: 20200713
  Serious: Yes (Hospitalization, Other)
  Sender: FDA-Public Use
  Company Number: US-AMGEN-USASP2020052722

PATIENT
  Age: 83 Year
  Sex: Female

DRUGS (7)
  1. DOXYCYCLINE. [Concomitant]
     Active Substance: DOXYCYCLINE
  2. EVENITY [Suspect]
     Active Substance: ROMOSOZUMAB-AQQG
     Indication: OSTEOPOROSIS
     Dosage: UNK
     Route: 065
     Dates: start: 201912
  3. PROLIA [Suspect]
     Active Substance: DENOSUMAB
  4. PROLIA [Suspect]
     Active Substance: DENOSUMAB
     Indication: OSTEOPOROSIS
     Dosage: UNK
     Route: 065
  5. PREDNISONE. [Suspect]
     Active Substance: PREDNISONE
     Indication: RHEUMATOID ARTHRITIS
     Dosage: LOW DOSE 1-2 MG , QD
     Route: 065
  6. CORTISONE [Concomitant]
     Active Substance: CORTISONE
     Dosage: TWICE PER YEAR
  7. ENBREL [Suspect]
     Active Substance: ETANERCEPT
     Indication: RHEUMATOID ARTHRITIS
     Dosage: UNK
     Route: 065
     Dates: start: 2012

REACTIONS (11)
  - Spinal disorder [Unknown]
  - Procedural complication [Unknown]
  - Decreased immune responsiveness [Unknown]
  - Rheumatoid arthritis [Unknown]
  - Sjogren^s syndrome [Unknown]
  - Bronchitis [Recovered/Resolved]
  - Influenza like illness [Unknown]
  - Thrombosis [Unknown]
  - Fracture [Unknown]
  - Drug ineffective [Unknown]
  - Cerebrospinal fluid leakage [Unknown]
